FAERS Safety Report 9969763 (Version 2)
Quarter: 2014Q1

REPORT INFORMATION
  Report Type: Spontaneous
  Country: US (occurrence: US)
  Receive Date: 20140306
  Receipt Date: 20140312
  Transmission Date: 20141002
  Serious: Yes (Hospitalization)
  Sender: FDA-Public Use
  Company Number: US-JNJFOC-20140216933

PATIENT
  Age: 81 Year
  Sex: Female
  Weight: 70.76 kg

DRUGS (10)
  1. DURAGESIC [Suspect]
     Indication: RESTLESS LEGS SYNDROME
     Route: 062
  2. DURAGESIC [Suspect]
     Indication: RESTLESS LEGS SYNDROME
     Route: 062
     Dates: end: 201401
  3. DURAGESIC [Suspect]
     Indication: RESTLESS LEGS SYNDROME
     Route: 062
     Dates: start: 201401
  4. DURAGESIC [Suspect]
     Indication: PAIN
     Route: 062
  5. DURAGESIC [Suspect]
     Indication: PAIN
     Route: 062
     Dates: end: 201401
  6. DURAGESIC [Suspect]
     Indication: PAIN
     Route: 062
     Dates: start: 201401
  7. NITROFURANTOIN MONO MCR [Concomitant]
     Indication: BLADDER DISORDER
     Route: 048
  8. LAMICTAL [Concomitant]
     Indication: RESTLESS LEGS SYNDROME
     Route: 048
  9. SYNTHROID [Concomitant]
     Indication: PRODUCT USED FOR UNKNOWN INDICATION
     Route: 065
  10. TRIAMTERENE HCTZ [Concomitant]
     Indication: DIURETIC THERAPY
     Route: 048

REACTIONS (9)
  - Breast cancer [Unknown]
  - Colon cancer [Unknown]
  - Product quality issue [Unknown]
  - Therapeutic response decreased [Not Recovered/Not Resolved]
  - Product physical issue [Unknown]
  - Therapeutic response decreased [Recovered/Resolved]
  - Product quality issue [Unknown]
  - Wrong technique in drug usage process [Recovered/Resolved]
  - Product quality issue [Unknown]
